FAERS Safety Report 8015298-0 (Version None)
Quarter: 2011Q4

REPORT INFORMATION
  Report Type: 
  Country: None (occurrence: None)
  Receive Date: 20111230
  Receipt Date: 20111222
  Transmission Date: 20120403
  Serious: Yes (Other)
  Sender: FDA-Public Use
  Company Number: BE-AMGEN-BELSP2011069181

PATIENT

DRUGS (5)
  1. DEPAKENE [Interacting]
     Indication: EPILEPSY
     Dosage: 300 MG, UNK
  2. LAMICTAL [Interacting]
     Indication: EPILEPSY
     Dosage: 25 MG, 2X/DAY
     Route: 048
  3. CARBAMAZEPINE [Interacting]
     Indication: EPILEPSY
     Dosage: 400 MG, 1X/DAY
     Route: 048
  4. TOPAMAX [Interacting]
     Indication: EPILEPSY
     Dosage: 150 MG, 2X/DAY
     Route: 048
  5. ENBREL [Suspect]
     Indication: PSORIASIS
     Dosage: UNK

REACTIONS (2)
  - DRUG INTERACTION [None]
  - EPILEPSY [None]
